FAERS Safety Report 18624432 (Version 1)
Quarter: 2020Q4

REPORT INFORMATION
  Report Type: Spontaneous
  Country: DK (occurrence: DK)
  Receive Date: 20201216
  Receipt Date: 20201216
  Transmission Date: 20210114
  Serious: Yes (Other)
  Sender: FDA-Public Use
  Company Number: DK-009507513-2012DNK005757

PATIENT
  Age: 70 Year
  Sex: Female

DRUGS (8)
  1. CALCIUM CARBONATE. [Concomitant]
     Active Substance: CALCIUM CARBONATE
     Indication: OSTEOPOROSIS
     Dosage: UNKNOWN DAILY
     Route: 048
     Dates: start: 1999
  2. DIDRONATE [Suspect]
     Active Substance: ETIDRONATE DISODIUM
     Dosage: UNK
     Route: 048
     Dates: start: 1999, end: 2003
  3. CHOLECALCIFEROL [Concomitant]
     Active Substance: CHOLECALCIFEROL
     Indication: OSTEOPOROSIS
     Dosage: UNKNOWN DAILY
     Route: 048
     Dates: start: 1999
  4. PAMIDRONIC ACID [Suspect]
     Active Substance: PAMIDRONIC ACID
     Indication: OSTEOPOROSIS
     Dosage: 30 MG EVERY THREE MONTHS
     Route: 042
     Dates: start: 2006
  5. NORETHINDRONE. [Suspect]
     Active Substance: NORETHINDRONE
     Indication: MENOPAUSAL SYMPTOMS
     Dosage: UNK
     Dates: start: 1984, end: 2002
  6. ZOLEDRONIC ACID [Suspect]
     Active Substance: ZOLEDRONIC ACID
     Indication: OSTEOPOROSIS
     Dosage: 5 MG ONCE A YEAR
     Route: 042
     Dates: start: 200709
  7. ETHINYL ESTRADIOL [Suspect]
     Active Substance: ETHINYL ESTRADIOL
     Indication: MENOPAUSAL SYMPTOMS
     Dosage: UNK
     Dates: start: 1984, end: 2002
  8. ALENDRONATE SODIUM. [Suspect]
     Active Substance: ALENDRONATE SODIUM
     Indication: OSTEOPOROSIS
     Dosage: 70 MG ONCE WEEKLY
     Route: 065
     Dates: start: 2003

REACTIONS (7)
  - Low turnover osteopathy [Unknown]
  - Femur fracture [Recovered/Resolved]
  - Spinal compression fracture [Unknown]
  - Atypical femur fracture [Recovered/Resolved]
  - Body height decreased [Unknown]
  - Atypical femur fracture [Recovered/Resolved]
  - Fracture nonunion [Recovered/Resolved]

NARRATIVE: CASE EVENT DATE: 2005
